FAERS Safety Report 15451944 (Version 1)
Quarter: 2018Q4

REPORT INFORMATION
  Report Type: Report from Study
  Country: US (occurrence: US)
  Receive Date: 20181001
  Receipt Date: 20181001
  Transmission Date: 20190204
  Serious: Yes (Other)
  Sender: FDA-Public Use
  Company Number: US-EMD SERONO-E2B_90060454

PATIENT
  Sex: Female

DRUGS (1)
  1. REBIF [Suspect]
     Active Substance: INTERFERON BETA-1A
     Indication: PRODUCT USED FOR UNKNOWN INDICATION
     Route: 058
     Dates: start: 20180227

REACTIONS (9)
  - Foot fracture [Unknown]
  - Haemoglobin abnormal [Unknown]
  - Insomnia [Unknown]
  - Ligament sprain [Unknown]
  - Fall [Unknown]
  - Balance disorder [Unknown]
  - Laboratory test abnormal [Unknown]
  - Oedema peripheral [Unknown]
  - Renal impairment [Unknown]

NARRATIVE: CASE EVENT DATE: 2018
